FAERS Safety Report 9695854 (Version 1)
Quarter: 2013Q4

REPORT INFORMATION
  Report Type: Spontaneous
  Country: US (occurrence: None)
  Receive Date: 20131118
  Receipt Date: 20131118
  Transmission Date: 20140711
  Serious: No
  Sender: FDA-Public Use
  Company Number: None

PATIENT
  Age: 61 Year
  Sex: Female

DRUGS (1)
  1. WATSON FENTANYL PATCH [Suspect]
     Indication: PAIN
     Dosage: CHANGE PATCH EVERY 48 HOURS APPLIED TO A SUFACE USUALLY THE SKIN
     Route: 061

REACTIONS (5)
  - Economic problem [None]
  - Product quality issue [None]
  - Drug ineffective [None]
  - Hypertension [None]
  - Heart rate increased [None]
